FAERS Safety Report 24457219 (Version 1)
Quarter: 2024Q4

REPORT INFORMATION
  Report Type: Spontaneous
  Country: US (occurrence: US)
  Receive Date: 20241018
  Receipt Date: 20241018
  Transmission Date: 20250114
  Serious: No
  Sender: ALKEM
  Company Number: US-ALKEM LABORATORIES LIMITED-US-ALKEM-2024-20564

PATIENT
  Sex: Male
  Weight: 1.97 kg

DRUGS (3)
  1. LACOSAMIDE [Suspect]
     Active Substance: LACOSAMIDE
     Indication: Seizure
     Dosage: 4 ALIQUOTS OF 2 MILLIGRAM PER KILOGRAM AT A TIME IN A 24-HOUR PERIOD
     Route: 065
  2. LACOSAMIDE [Suspect]
     Active Substance: LACOSAMIDE
     Dosage: 3 MILLIGRAM/KILOGRAM, BID
     Route: 065
  3. LACOSAMIDE [Suspect]
     Active Substance: LACOSAMIDE
     Dosage: 5 MILLIGRAM/KILOGRAM, BID (DOSE INCREASED)
     Route: 065

REACTIONS (3)
  - Heart sounds abnormal [Unknown]
  - Extrasystoles [Unknown]
  - Supraventricular extrasystoles [Unknown]
